FAERS Safety Report 9786533 (Version 2)
Quarter: 2014Q1

REPORT INFORMATION
  Report Type: Report from Study
  Country: US (occurrence: US)
  Receive Date: 20131227
  Receipt Date: 20140312
  Transmission Date: 20141002
  Serious: Yes (Other)
  Sender: FDA-Public Use
  Company Number: US-PURDUE-USA-2013-0109824

PATIENT
  Sex: Female
  Weight: 63.49 kg

DRUGS (2)
  1. OXY CR TAB [Suspect]
     Indication: INTERVERTEBRAL DISC DEGENERATION
     Dosage: 160 MG, BID
     Route: 048
     Dates: start: 2012
  2. OXY CR TAB [Suspect]
     Indication: OSTEOARTHRITIS

REACTIONS (10)
  - Deafness [Unknown]
  - Musculoskeletal stiffness [Unknown]
  - Sleep disorder [Unknown]
  - Gastrooesophageal reflux disease [Unknown]
  - Urinary hesitation [Unknown]
  - Intervertebral disc degeneration [Not Recovered/Not Resolved]
  - Cystitis interstitial [Unknown]
  - Bladder operation [Unknown]
  - Back pain [Unknown]
  - Pollakiuria [Not Recovered/Not Resolved]
